FAERS Safety Report 15069370 (Version 2)
Quarter: 2019Q3

REPORT INFORMATION
  Report Type: Report from Study
  Country: US (occurrence: US)
  Receive Date: 20180626
  Receipt Date: 20190716
  Transmission Date: 20191004
  Serious: No
  Sender: FDA-Public Use
  Company Number: PHEH2018US025941

PATIENT
  Sex: Female

DRUGS (1)
  1. ENTRESTO [Suspect]
     Active Substance: SACUBITRIL\VALSARTAN
     Indication: CARDIAC FAILURE
     Dosage: 1 DF,(SACUBITRIL 34MG, VALSARTAN 26MG) UNK
     Route: 048

REACTIONS (2)
  - Dizziness [Unknown]
  - Nasopharyngitis [Unknown]
